FAERS Safety Report 14547157 (Version 2)
Quarter: 2018Q1

REPORT INFORMATION
  Report Type: Spontaneous
  Country: JP (occurrence: JP)
  Receive Date: 20180219
  Receipt Date: 20180228
  Transmission Date: 20180509
  Serious: Yes (Death, Other)
  Sender: FDA-Public Use
  Company Number: JP-BAYER-2017-189342

PATIENT
  Age: 52 Year
  Sex: Male

DRUGS (1)
  1. NEXAVAR [Suspect]
     Active Substance: SORAFENIB
     Indication: HEPATOCELLULAR CARCINOMA
     Dosage: 400 MG, BID
     Route: 048
     Dates: start: 20170915, end: 20171002

REACTIONS (6)
  - Alanine aminotransferase increased [Fatal]
  - Hepatic failure [Fatal]
  - Jaundice [Fatal]
  - Prothrombin level decreased [Fatal]
  - Blood bilirubin increased [Fatal]
  - Aspartate aminotransferase increased [Fatal]

NARRATIVE: CASE EVENT DATE: 20171002
